FAERS Safety Report 8304453-8 (Version None)
Quarter: 2012Q2

REPORT INFORMATION
  Report Type: 
  Country: None (occurrence: None)
  Receive Date: 20120423
  Receipt Date: 20120416
  Transmission Date: 20120825
  Serious: Yes (Death, Hospitalization, Other)
  Sender: FDA-Public Use
  Company Number: CA-PFIZER INC-2012098594

PATIENT
  Age: 25 Year
  Sex: Female

DRUGS (12)
  1. METOCLOPRAMIDE [Concomitant]
     Dosage: UNK
     Dates: start: 20120112, end: 20120114
  2. GABAPENTIN [Concomitant]
     Dosage: UNK
     Dates: start: 20120105, end: 20120112
  3. HYDROMORPHONE [Concomitant]
     Dosage: UNK
     Dates: start: 20120112, end: 20120117
  4. PANTOPRAZOLE [Suspect]
     Dosage: UNK
     Dates: start: 20120112, end: 20120112
  5. NAPROXEN [Suspect]
     Dosage: UNK
     Dates: start: 20120112, end: 20120116
  6. MIDAZOLAM [Concomitant]
     Dosage: UNK
     Dates: start: 20120105, end: 20120112
  7. METHOTRIMEPRAZINE [Concomitant]
     Dosage: UNK
     Dates: start: 20120105, end: 20120117
  8. LOPERAMIDE [Concomitant]
     Dosage: UNK
     Dates: start: 20120112, end: 20120113
  9. DOCUSATE SODIUM [Concomitant]
     Dosage: UNK
     Dates: start: 20120112, end: 20120116
  10. IPILIMUMAB [Suspect]
     Indication: MALIGNANT MELANOMA
     Dosage: 203 MG, UNK
     Route: 042
     Dates: start: 20120112, end: 20120112
  11. CLOXACILLIN SODIUM [Suspect]
     Dosage: UNK
     Dates: start: 20120108, end: 20120112
  12. ONDANSETRON [Concomitant]
     Dosage: UNK
     Dates: start: 20120112, end: 20120112

REACTIONS (3)
  - MALIGNANT MELANOMA [None]
  - DISEASE PROGRESSION [None]
  - RENAL FAILURE [None]
